FAERS Safety Report 22616505 (Version 1)
Quarter: 2023Q2

REPORT INFORMATION
  Report Type: Report from Study
  Country: CA (occurrence: CA)
  Receive Date: 20230619
  Receipt Date: 20230619
  Transmission Date: 20230722
  Serious: Yes (Other)
  Sender: FDA-Public Use
  Company Number: CA-ABBVIE-5294382

PATIENT
  Age: 84 Year
  Sex: Male

DRUGS (8)
  1. LUPRON DEPOT [Suspect]
     Active Substance: LEUPROLIDE ACETATE
     Indication: Prostate cancer
     Dosage: POWDER AND SOLVENT FOR SUSPENSION FOR INJECTION IN PRE-FILLED SYRINGE
     Route: 030
     Dates: start: 20090828
  2. APO TRAVOPROST TIMOP [Concomitant]
     Indication: Product used for unknown indication
     Dosage: 0.004%-0.5%?PQ?1 DROP IN BOTH EYES ONCE DAILY
     Route: 047
  3. XTANDI [Concomitant]
     Active Substance: ENZALUTAMIDE
     Indication: Product used for unknown indication
     Route: 048
  4. TAMSULOSIN HYDROCHLORIDE [Concomitant]
     Active Substance: TAMSULOSIN HYDROCHLORIDE
     Indication: Product used for unknown indication
     Dosage: CR
     Route: 048
  5. ASPIRIN [Concomitant]
     Active Substance: ASPIRIN
     Indication: Product used for unknown indication
     Dosage: PRO
     Route: 048
  6. CALCIUM CARBONATE [Concomitant]
     Active Substance: CALCIUM CARBONATE
     Indication: Product used for unknown indication
     Dosage: 500 MG-400UI
     Route: 048
  7. AMLODIPINE [Concomitant]
     Active Substance: AMLODIPINE BESYLATE
     Indication: Product used for unknown indication
     Route: 048
  8. PANTOPRAZOLE SODIUM [Concomitant]
     Active Substance: PANTOPRAZOLE SODIUM
     Indication: Product used for unknown indication
     Route: 048

REACTIONS (1)
  - Leukaemia [Unknown]

NARRATIVE: CASE EVENT DATE: 20230613
